FAERS Safety Report 6619638-6 (Version None)
Quarter: 2010Q1

REPORT INFORMATION
  Report Type: 
  Country: None (occurrence: None)
  Receive Date: 20100303
  Receipt Date: 20100216
  Transmission Date: 20100710
  Serious: Yes (Death)
  Sender: FDA-Public Use
  Company Number: 2010020096

PATIENT
  Age: 58 Year
  Sex: Female

DRUGS (5)
  1. CARISOPRODOL [Suspect]
  2. MORPHINE [Suspect]
  3. ALPRAZOLAM [Suspect]
  4. SECOBARBITAL SODIUM [Suspect]
  5. CLONAZEPAM [Suspect]

REACTIONS (3)
  - CARDIAC ARREST [None]
  - DRUG ABUSE [None]
  - RESPIRATORY ARREST [None]
